FAERS Safety Report 13380420 (Version 1)
Quarter: 2017Q1

REPORT INFORMATION
  Report Type: Spontaneous
  Country: US (occurrence: US)
  Receive Date: 20170329
  Receipt Date: 20170329
  Transmission Date: 20170429
  Serious: No
  Sender: FDA-Public Use
  Company Number: US-B.I. PHARMACEUTICALS,INC./RIDGEFIELD-2017-BI-017360

PATIENT
  Sex: Female

DRUGS (3)
  1. CATAPRES-TTS [Suspect]
     Active Substance: CLONIDINE
     Indication: HYPERTENSION
     Dosage: ONCE DAILY;  FORM STRENGTH: 2.5 MG (0.1 MG / DAY); FORMULATION: PATCH? ADMINISTRATION CORRECT? YES
     Route: 061
     Dates: start: 2015
  2. SPIRONOLACTONE. [Concomitant]
     Active Substance: SPIRONOLACTONE
     Indication: HYPERTENSION
     Dosage: ONCE DAILY;  FORM STRENGTH: 50MG; FORMULATION: TABLET
     Route: 048
  3. METOPROLOL. [Concomitant]
     Active Substance: METOPROLOL
     Indication: HYPERTENSION
     Dosage: ONCE DAILY;  FORM STRENGTH: 200MG; FORMULATION: TABLET
     Route: 048

REACTIONS (2)
  - Swelling [Unknown]
  - Erythema [Unknown]
